FAERS Safety Report 9866431 (Version 2)
Quarter: 2014Q1

REPORT INFORMATION
  Report Type: Report from Study
  Country: DE (occurrence: DE)
  Receive Date: 20140204
  Receipt Date: 20140204
  Transmission Date: 20141002
  Serious: Yes (Hospitalization)
  Sender: FDA-Public Use
  Company Number: DE-ROCHE-1340731

PATIENT
  Age: 75 Year
  Sex: Male

DRUGS (11)
  1. TOCILIZUMAB [Suspect]
     Indication: RHEUMATOID ARTHRITIS
     Route: 065
     Dates: start: 20130605, end: 20130726
  2. TOCILIZUMAB [Suspect]
     Route: 065
     Dates: start: 201208, end: 201305
  3. TOCILIZUMAB [Suspect]
     Route: 065
     Dates: start: 200903, end: 201205
  4. LEFLUNOMIDE [Suspect]
     Indication: RHEUMATOID ARTHRITIS
     Route: 065
     Dates: start: 200410, end: 201307
  5. PREDNISOLON [Suspect]
     Indication: PRODUCT USED FOR UNKNOWN INDICATION
     Route: 065
  6. INSULIN [Suspect]
     Indication: PRODUCT USED FOR UNKNOWN INDICATION
     Route: 065
     Dates: start: 2006
  7. ATACAND [Concomitant]
     Route: 065
  8. PANTOPRAZOL [Concomitant]
     Route: 065
     Dates: start: 2010
  9. TRAMADOL [Concomitant]
     Route: 065
     Dates: start: 2006
  10. CLEXANE [Concomitant]
  11. OSTEOPLUS (GERMANY) [Concomitant]
     Route: 065
     Dates: start: 2006

REACTIONS (3)
  - Device related infection [Not Recovered/Not Resolved]
  - Abscess [Recovered/Resolved]
  - Tenosynovitis [Recovered/Resolved]
